FAERS Safety Report 4723800-7 (Version None)
Quarter: 2005Q3

REPORT INFORMATION
  Report Type: 
  Country: None (occurrence: None)
  Receive Date: 20050725
  Receipt Date: 20050715
  Transmission Date: 20060218
  Serious: Yes (Hospitalization)
  Sender: FDA-Public Use
  Company Number: PHEH2005US07948

PATIENT
  Sex: Male

DRUGS (1)
  1. TOFRANIL [Suspect]

REACTIONS (3)
  - FALL [None]
  - HEAD INJURY [None]
  - SYNCOPE [None]
